FAERS Safety Report 19458722 (Version 5)
Quarter: 2021Q3

REPORT INFORMATION
  Report Type: Spontaneous
  Country: US (occurrence: US)
  Receive Date: 20210624
  Receipt Date: 20210914
  Transmission Date: 20211014
  Serious: No
  Sender: FDA-Public Use
  Company Number: US-GLAXOSMITHKLINE-US2021132110

PATIENT
  Age: 59 Year
  Sex: Female

DRUGS (1)
  1. ZEJULA [Suspect]
     Active Substance: NIRAPARIB
     Indication: OVARIAN CANCER
     Dosage: 100 MG, QD
     Route: 048
     Dates: start: 20210605

REACTIONS (15)
  - Insomnia [Not Recovered/Not Resolved]
  - Tumour marker abnormal [Unknown]
  - Blood glucose increased [Unknown]
  - Off label use [Unknown]
  - Blood pressure increased [Recovering/Resolving]
  - Fatigue [Unknown]
  - Blood creatinine increased [Unknown]
  - Heart rate increased [Not Recovered/Not Resolved]
  - Bone pain [Unknown]
  - Pruritus [Unknown]
  - Blood magnesium decreased [Unknown]
  - Diarrhoea [Unknown]
  - Rash papular [Unknown]
  - Asthenia [Not Recovered/Not Resolved]
  - Constipation [Unknown]

NARRATIVE: CASE EVENT DATE: 202106
